FAERS Safety Report 4462347-2 (Version None)
Quarter: 2004Q3

REPORT INFORMATION
  Report Type: 
  Country: None (occurrence: None)
  Receive Date: 20040924
  Receipt Date: 20040314
  Transmission Date: 20050211
  Serious: Yes (Hospitalization)
  Sender: FDA-Public Use
  Company Number: TRP_0011_2004

PATIENT
  Age: 19 Year
  Sex: Female
  Weight: 61.6892 kg

DRUGS (2)
  1. RIBAVIRIN [Suspect]
     Indication: HEPATITIS C
     Dosage: 1000 MG QDAY PO
     Route: 048
     Dates: start: 20030221, end: 20030305
  2. INTERFERON ALFACON-1/INFERGEN/INTERMUNE/15MCG [Suspect]
     Indication: HEPATITIS C
     Dosage: 15 MCG 3XWK SC
     Route: 058
     Dates: start: 20030221, end: 20030305

REACTIONS (10)
  - ACTIVITIES OF DAILY LIVING IMPAIRED [None]
  - ALANINE AMINOTRANSFERASE ABNORMAL [None]
  - ASPARTATE AMINOTRANSFERASE ABNORMAL [None]
  - BLOOD ALBUMIN ABNORMAL [None]
  - DEPRESSED LEVEL OF CONSCIOUSNESS [None]
  - DISTURBANCE IN ATTENTION [None]
  - FATIGUE [None]
  - IMPAIRED WORK ABILITY [None]
  - SOMNOLENCE [None]
  - TEARFULNESS [None]
